FAERS Safety Report 13106607 (Version 2)
Quarter: 2017Q1

REPORT INFORMATION
  Report Type: Spontaneous
  Country: US (occurrence: US)
  Receive Date: 20170111
  Receipt Date: 20170310
  Transmission Date: 20170428
  Serious: No
  Sender: FDA-Public Use
  Company Number: US-LUNDBECK-DKLU2020332

PATIENT
  Age: 59 Year
  Sex: Female

DRUGS (4)
  1. NORTHERA [Suspect]
     Active Substance: DROXIDOPA
     Indication: TREMOR
     Dosage: SCHEDULE B / TITRATING
     Route: 065
     Dates: start: 20160913
  2. NORTHERA [Suspect]
     Active Substance: DROXIDOPA
     Indication: DIZZINESS
  3. NORTHERA [Suspect]
     Active Substance: DROXIDOPA
     Indication: HYPOTENSION
     Route: 065
     Dates: end: 20160928
  4. NORTHERA [Suspect]
     Active Substance: DROXIDOPA
     Indication: BALANCE DISORDER

REACTIONS (3)
  - Drug ineffective [Unknown]
  - Dizziness [Recovered/Resolved]
  - Condition aggravated [Unknown]

NARRATIVE: CASE EVENT DATE: 201609
